FAERS Safety Report 14756222 (Version 1)
Quarter: 2018Q2

REPORT INFORMATION
  Report Type: Spontaneous
  Country: US (occurrence: US)
  Receive Date: 20180407
  Receipt Date: 20180407
  Transmission Date: 20180711
  Serious: Yes (Hospitalization)
  Sender: FDA-Public Use
  Company Number: None

PATIENT
  Age: 71 Year
  Sex: Male
  Weight: 97.43 kg

DRUGS (2)
  1. CARBOPLATIN. [Suspect]
     Active Substance: CARBOPLATIN
     Dates: end: 20180322
  2. TAXOL [Suspect]
     Active Substance: PACLITAXEL
     Dates: end: 20180322

REACTIONS (4)
  - Orthostatic hypotension [None]
  - Fatigue [None]
  - Asthenia [None]
  - Oesophagitis [None]

NARRATIVE: CASE EVENT DATE: 20180328
